FAERS Safety Report 14329114 (Version 2)
Quarter: 2018Q1

REPORT INFORMATION
  Report Type: Spontaneous
  Country: MX (occurrence: MX)
  Receive Date: 20171227
  Receipt Date: 20180116
  Transmission Date: 20180509
  Serious: Yes (Other)
  Sender: FDA-Public Use
  Company Number: PHHY2017MX192520

PATIENT
  Age: 79 Year
  Sex: Female
  Weight: 64 kg

DRUGS (12)
  1. VANCOCIN CP INYECTABLE [Suspect]
     Active Substance: VANCOMYCIN HYDROCHLORIDE
     Indication: PROPHYLAXIS
     Dosage: 1 G, Q8H
     Route: 042
     Dates: start: 20171212, end: 20171213
  2. TEMPRA [Concomitant]
     Active Substance: ACETAMINOPHEN
     Indication: PAIN
     Dosage: 1 G, PRN
     Route: 042
     Dates: start: 20171209, end: 20171221
  3. EPAMIN [Concomitant]
     Active Substance: PHENYTOIN SODIUM
     Indication: PRODUCT USED FOR UNKNOWN INDICATION
     Dosage: 125 MG, TID (EVERY THREE TIMES A DAY)
     Route: 042
     Dates: start: 20171212, end: 20171214
  4. ONDANSETRON [Concomitant]
     Active Substance: ONDANSETRON
     Indication: PRODUCT USED FOR UNKNOWN INDICATION
     Dosage: 8 MG, BID (EVERY 12 HOURS)
     Route: 042
     Dates: start: 20171212, end: 20171214
  5. DETRUSITOL [Concomitant]
     Active Substance: TOLTERODINE TARTRATE
     Indication: NEUROGENIC BLADDER
     Dosage: 2 MG, QD (EVERY 24 HOURS)
     Route: 065
  6. RANISEN [Concomitant]
     Indication: PROPHYLAXIS AGAINST GASTROINTESTINAL ULCER
     Dosage: 50 MG, BID (EVERY 12 HOURS)
     Route: 042
     Dates: start: 20171213, end: 20171219
  7. DOLAC [Concomitant]
     Indication: PAIN
     Dosage: 30 MG, PRN
     Route: 042
     Dates: start: 20171211, end: 20171222
  8. LYRICA [Concomitant]
     Active Substance: PREGABALIN
     Indication: PRODUCT USED FOR UNKNOWN INDICATION
     Dosage: 150 MG, BID (EVERY 12 HOURS)
     Route: 065
  9. KARET [Concomitant]
     Indication: HYPOTHYROIDISM
     Dosage: 1 DF, QD
     Route: 048
     Dates: start: 20171211, end: 20171222
  10. TEMPRA [Concomitant]
     Active Substance: ACETAMINOPHEN
     Indication: PYREXIA
  11. ZINNAT [Concomitant]
     Active Substance: CEFUROXIME AXETIL
     Indication: PRODUCT USED FOR UNKNOWN INDICATION
     Dosage: 750 MG, TID (EVERY 8 HOURS)
     Route: 042
     Dates: start: 20171212, end: 20171213
  12. EXFORGE [Suspect]
     Active Substance: AMLODIPINE BESYLATE\VALSARTAN
     Indication: HYPERTENSION
     Dosage: UNK
     Route: 048
     Dates: start: 20171212, end: 20171213

REACTIONS (2)
  - Red man syndrome [Recovered/Resolved]
  - Wrong technique in product usage process [Unknown]

NARRATIVE: CASE EVENT DATE: 20171213
